FAERS Safety Report 6707602-8 (Version None)
Quarter: 2010Q2

REPORT INFORMATION
  Report Type: 
  Country: None (occurrence: None)
  Receive Date: 20100503
  Receipt Date: 20100429
  Transmission Date: 20101027
  Serious: No
  Sender: FDA-Public Use
  Company Number: US-B.I. PHARMACEUTICALS,INC./RIDGEFIELD-2010-BP-04384BP

PATIENT
  Age: 76 Year
  Sex: Female

DRUGS (17)
  1. MIRAPEX [Suspect]
     Indication: RESTLESS LEGS SYNDROME
     Route: 048
     Dates: start: 20071201, end: 20081101
  2. MIRAPEX [Suspect]
     Route: 048
     Dates: start: 20081201
  3. ACTONEL [Concomitant]
  4. ALBUTEROL [Concomitant]
  5. ASTELIN [Concomitant]
  6. BUMETANIDE [Concomitant]
  7. COZAAR [Concomitant]
  8. CYMBALTA [Concomitant]
  9. DILTIAZEM HCL [Concomitant]
  10. FENOFIBRATE [Concomitant]
  11. HYDROCODONE BITARTRATE [Concomitant]
  12. KLOR-CON [Concomitant]
  13. METOLAZONE [Concomitant]
  14. OMEPRAZOLE [Concomitant]
  15. PLAVIX [Concomitant]
  16. QUESTRAN [Concomitant]
  17. VESICARE [Concomitant]

REACTIONS (5)
  - AMNESIA [None]
  - DRUG EFFECT DECREASED [None]
  - FATIGUE [None]
  - LOSS OF CONSCIOUSNESS [None]
  - SUDDEN ONSET OF SLEEP [None]
